FAERS Safety Report 6869625-8 (Version None)
Quarter: 2010Q3

REPORT INFORMATION
  Report Type: 
  Country: None (occurrence: None)
  Receive Date: 20100722
  Receipt Date: 20080814
  Transmission Date: 20110219
  Serious: Yes (Other)
  Sender: FDA-Public Use
  Company Number: US-PFIZER INC-2008069098

PATIENT
  Sex: Male
  Weight: 124 kg

DRUGS (7)
  1. CHANTIX [Suspect]
     Indication: SMOKING CESSATION THERAPY
     Dates: start: 20080804, end: 20080813
  2. ALAVERT [Concomitant]
  3. ASPIRIN [Concomitant]
     Indication: FLUID RETENTION
  4. TERBINAFINE HCL [Concomitant]
  5. METOCLOPRAMIDE [Concomitant]
  6. HYDROCHLOROTHIAZIDE [Concomitant]
     Indication: FLUID RETENTION
  7. PROTONIX [Concomitant]

REACTIONS (7)
  - ARTHRALGIA [None]
  - ARTHROPOD BITE [None]
  - CHILLS [None]
  - MASS [None]
  - OEDEMA PERIPHERAL [None]
  - PRURITUS [None]
  - RASH [None]
